FAERS Safety Report 23528848 (Version 1)
Quarter: 2024Q1

REPORT INFORMATION
  Report Type: Spontaneous
  Country: US (occurrence: US)
  Receive Date: 20240215
  Receipt Date: 20240215
  Transmission Date: 20240409
  Serious: No
  Sender: FDA-Public Use
  Company Number: US-SANOFI-01940841

PATIENT
  Age: 71 Year
  Sex: Female

DRUGS (3)
  1. SOLIQUA 100/33 [Suspect]
     Active Substance: INSULIN GLARGINE\LIXISENATIDE
     Indication: Type 2 diabetes mellitus
     Dosage: 40 U, QD
     Route: 058
  2. SYNTHROID [Concomitant]
     Active Substance: LEVOTHYROXINE SODIUM
     Indication: Thyroid disorder
  3. METFORMIN [Concomitant]
     Active Substance: METFORMIN HYDROCHLORIDE
     Dosage: 1000 MG, BID

REACTIONS (1)
  - Endocrine disorder [Unknown]
